FAERS Safety Report 7236352-7 (Version None)
Quarter: 2011Q1

REPORT INFORMATION
  Report Type: 
  Country: None (occurrence: None)
  Receive Date: 20110120
  Receipt Date: 20101214
  Transmission Date: 20110831
  Serious: Yes (Other)
  Sender: FDA-Public Use
  Company Number: PHHY2010IT89979

PATIENT
  Sex: Female

DRUGS (1)
  1. METFORMIN HEXAL [Suspect]
     Indication: DIABETES MELLITUS
     Dosage: 1 G, DAILY
     Route: 048
     Dates: start: 20100601, end: 20100701

REACTIONS (2)
  - DERMATITIS BULLOUS [None]
  - DIARRHOEA [None]
